FAERS Safety Report 8348222-1 (Version None)
Quarter: 2012Q2

REPORT INFORMATION
  Report Type: 
  Country: None (occurrence: None)
  Receive Date: 20120509
  Receipt Date: 20120419
  Transmission Date: 20120825
  Serious: Yes (Other)
  Sender: FDA-Public Use
  Company Number: PHHY2012IN039007

PATIENT
  Age: 65 Year
  Sex: Male

DRUGS (2)
  1. IMIPRAMINE [Suspect]
     Indication: DEPRESSION
     Dosage: 25 MG, BID
     Route: 048
  2. INSULIN [Concomitant]
     Indication: DIABETES MELLITUS

REACTIONS (6)
  - DIABETIC RETINOPATHY [None]
  - IRIDOCELE [None]
  - MIOSIS [None]
  - CATARACT [None]
  - VISUAL ACUITY REDUCED [None]
  - FLOPPY IRIS SYNDROME [None]
